FAERS Safety Report 6588377-2 (Version None)
Quarter: 2010Q1

REPORT INFORMATION
  Report Type: 
  Country: None (occurrence: None)
  Receive Date: 20100218
  Receipt Date: 20091125
  Transmission Date: 20100710
  Serious: Yes (Other)
  Sender: FDA-Public Use
  Company Number: US-ALLERGAN-0911179US

PATIENT
  Age: 52 Year
  Sex: Male
  Weight: 118.82 kg

DRUGS (7)
  1. BOTOX [Suspect]
     Indication: NECK PAIN
     Dosage: 225 UNITS, SINGLE
     Dates: start: 20080925, end: 20080925
  2. BOTOX [Suspect]
     Indication: MIGRAINE
     Dosage: UNK
  3. VERAPAMIL [Concomitant]
  4. VYTORIN [Concomitant]
  5. KETOPROFEN [Concomitant]
  6. ACIPHEX [Concomitant]
  7. HYDROXYPAM [Concomitant]

REACTIONS (3)
  - DYSPHAGIA [None]
  - MUSCLE FATIGUE [None]
  - MUSCULAR WEAKNESS [None]
